FAERS Safety Report 6040682-4 (Version None)
Quarter: 2009Q1

REPORT INFORMATION
  Report Type: 
  Country: None (occurrence: None)
  Receive Date: 20090116
  Receipt Date: 20080505
  Transmission Date: 20090719
  Serious: No
  Sender: FDA-Public Use
  Company Number: US-BRISTOL-MYERS SQUIBB COMPANY-14175848

PATIENT

DRUGS (2)
  1. ABILIFY [Suspect]
     Dosage: ABILIFY 40 (UNITS NOT MENTIONED).
  2. PROLIXIN [Concomitant]

REACTIONS (1)
  - DELUSION [None]
